FAERS Safety Report 5739376-1 (Version None)
Quarter: 2008Q2

REPORT INFORMATION
  Report Type: 
  Country: None (occurrence: None)
  Receive Date: 20080515
  Receipt Date: 20080513
  Transmission Date: 20081010
  Serious: Yes (Other)
  Sender: FDA-Public Use
  Company Number: US-SANOFI-SYNTHELABO-A03200705242

PATIENT
  Sex: Male
  Weight: 70.3 kg

DRUGS (10)
  1. AMBIEN [Suspect]
     Indication: INSOMNIA
     Route: 048
     Dates: start: 20010620, end: 20021231
  2. AMBIEN [Suspect]
     Indication: PAIN
     Route: 048
     Dates: start: 20010620, end: 20021231
  3. MS CONTIN [Concomitant]
     Indication: PAIN
     Route: 048
     Dates: end: 20030101
  4. SOMA [Concomitant]
     Indication: BACK PAIN
     Dosage: 350 1 TAB THREE TIMES/DAY
     Route: 048
     Dates: start: 20000101, end: 20080101
  5. NORCO [Concomitant]
     Indication: PAIN
     Dosage: 10/325 1 TAB THREE TIMES/DAY
     Route: 048
     Dates: start: 20010101
  6. ZOLOFT [Concomitant]
     Indication: DRUG USE FOR UNKNOWN INDICATION
     Dosage: UNK
     Route: 065
     Dates: start: 20020101
  7. ZYPREXA [Concomitant]
     Indication: DRUG USE FOR UNKNOWN INDICATION
     Dosage: UNK
     Route: 065
     Dates: start: 20020101
  8. KADIAN [Concomitant]
     Indication: DRUG USE FOR UNKNOWN INDICATION
     Dosage: UNK
     Route: 065
     Dates: start: 20020101
  9. DURAGESIC-100 [Concomitant]
     Indication: DRUG USE FOR UNKNOWN INDICATION
     Dosage: UNK
     Route: 065
     Dates: start: 20020101
  10. OXYCONTIN [Concomitant]
     Indication: DRUG USE FOR UNKNOWN INDICATION
     Dosage: UNK
     Route: 065
     Dates: start: 20020101

REACTIONS (4)
  - ABNORMAL BEHAVIOUR [None]
  - AMNESIA [None]
  - IMPAIRED DRIVING ABILITY [None]
  - SOMNAMBULISM [None]
